FAERS Safety Report 12311449 (Version 2)
Quarter: 2016Q2

REPORT INFORMATION
  Report Type: Spontaneous
  Country: US (occurrence: US)
  Receive Date: 20160427
  Receipt Date: 20160505
  Transmission Date: 20160815
  Serious: Yes (Hospitalization)
  Sender: FDA-Public Use
  Company Number: US-SIGMA-TAU US-2016STPI000304

PATIENT
  Age: 27 Year
  Sex: Female

DRUGS (1)
  1. ADAGEN [Suspect]
     Active Substance: PEGADEMASE BOVINE
     Indication: COMBINED IMMUNODEFICIENCY
     Dosage: 6 MG, QW
     Route: 058

REACTIONS (6)
  - Pre-eclampsia [None]
  - Oligohydramnios [Unknown]
  - Hepatic enzyme increased [None]
  - Hypertension [None]
  - Proteinuria [None]
  - CD4 lymphocytes decreased [None]
